FAERS Safety Report 7138319-6 (Version None)
Quarter: 2010Q4

REPORT INFORMATION
  Report Type: 
  Country: None (occurrence: None)
  Receive Date: 20101104
  Receipt Date: 20100908
  Transmission Date: 20110411
  Serious: Yes (Hospitalization)
  Sender: FDA-Public Use
  Company Number: US-WYE-H17418110

PATIENT
  Age: 26 Year
  Sex: Female
  Weight: 44.95 kg

DRUGS (6)
  1. ZOSYN [Suspect]
     Indication: SEPTIC SHOCK
     Dates: start: 20100801, end: 20100101
  2. CEFTRIAXONE [Suspect]
     Dates: start: 20100801
  3. FLAGYL [Suspect]
     Indication: STAPHYLOCOCCAL INFECTION
     Dosage: 500 MG 3X PER 1 DAY, ORAL
     Route: 048
     Dates: start: 20100801
  4. ZYVOX [Suspect]
     Indication: SEPTIC SHOCK
     Dosage: 600 MG 2X PER 1 DAY, ORAL
     Route: 048
     Dates: start: 20100101
  5. ZYVOX [Suspect]
     Dosage: 600 MG 2X PER 1 DAY, INTRAVENOUS
     Route: 042
     Dates: start: 20100801
  6. VANCOMYCIN [Concomitant]

REACTIONS (5)
  - DIARRHOEA [None]
  - DRUG INEFFECTIVE [None]
  - FAECES DISCOLOURED [None]
  - TREMOR [None]
  - URINE OUTPUT DECREASED [None]
